FAERS Safety Report 8399674-2 (Version None)
Quarter: 2012Q2

REPORT INFORMATION
  Report Type: 
  Country: None (occurrence: None)
  Receive Date: 20120323
  Receipt Date: 20111115
  Transmission Date: 20120825
  Serious: Yes (Hospitalization)
  Sender: FDA-Public Use
  Company Number: 163-21880-11072339

PATIENT
  Age: 71 Year
  Sex: Female

DRUGS (9)
  1. REVLIMID [Suspect]
     Indication: MULTIPLE MYELOMA
     Dosage: 25 MG, DAILY X 21, THEN 1 WK OFF, PO
     Route: 048
     Dates: start: 20091217
  2. OXYCODONE HCL (OXYCODONE HYDROCHLORIDE)(UNKNOWN) [Concomitant]
  3. HYDROCODONE-ACETAMINOPHEN (VICODIN)(UNKNOWN) [Concomitant]
  4. HYDROCHLOROTHIAZIDE [Concomitant]
  5. LISINOPRIL [Concomitant]
  6. PERCOCET [Concomitant]
  7. GABAPENTIN [Concomitant]
  8. CYMBALTA [Concomitant]
  9. TRIPROLIDINE HCL (TRIPROLIDINE HYDROCHLORIDE) [Concomitant]

REACTIONS (2)
  - PRURITUS [None]
  - URTICARIA [None]
